FAERS Safety Report 9179200 (Version 2)
Quarter: 2013Q3

REPORT INFORMATION
  Report Type: Spontaneous
  Country: JP (occurrence: JP)
  Receive Date: 20121029
  Receipt Date: 20130805
  Transmission Date: 20140515
  Serious: Yes (Death, Other)
  Sender: FDA-Public Use
  Company Number: JP-ASTELLAS-2012JP010096

PATIENT
  Age: 77 Year
  Sex: Male
  Weight: 53 kg

DRUGS (7)
  1. PROGRAF [Suspect]
     Indication: RHEUMATOID ARTHRITIS
     Dosage: 3 MG, UID/QD
     Route: 048
     Dates: start: 20120616, end: 20120807
  2. PROGRAF [Suspect]
     Dosage: 1 MG, UID/QD
     Route: 048
     Dates: start: 2008
  3. PREDONINE /00016201/ [Suspect]
     Indication: RHEUMATOID ARTHRITIS
     Dosage: 4 MG, BID
     Route: 048
     Dates: start: 20120616, end: 20120711
  4. ALFAROL [Concomitant]
     Indication: OSTEOPOROSIS
     Dosage: 1 UG, UID/QD
     Route: 048
     Dates: start: 20120616, end: 20120711
  5. GLACTIV [Concomitant]
     Indication: DIABETES MELLITUS
     Dosage: 50 MG, UID/QD
     Route: 048
     Dates: start: 20120616, end: 20120711
  6. SEIBULE [Concomitant]
     Indication: DIABETES MELLITUS
     Dosage: 50 MG, TID
     Route: 048
     Dates: start: 20120616, end: 20120711
  7. BAKTAR [Concomitant]
     Indication: RHEUMATOID ARTHRITIS
     Dosage: 2 DF, UID/QD
     Route: 048
     Dates: start: 20120616, end: 20120711

REACTIONS (4)
  - Intentional drug misuse [Unknown]
  - Pneumonia [Fatal]
  - Bone marrow failure [Unknown]
  - Respiratory tract infection [Unknown]
